FAERS Safety Report 6125709-3 (Version None)
Quarter: 2009Q1

REPORT INFORMATION
  Report Type: 
  Country: None (occurrence: None)
  Receive Date: 20090319
  Receipt Date: 20090319
  Transmission Date: 20090719
  Serious: Yes (Other)
  Sender: FDA-Public Use
  Company Number: None

PATIENT
  Age: 69 Year
  Sex: Female
  Weight: 52.1637 kg

DRUGS (1)
  1. NEVANAC [Suspect]
     Indication: CATARACT
     Dosage: 1 DROP FOUR TIMES A DAY OPHTHALMIC
     Route: 047
     Dates: start: 20090219, end: 20090302

REACTIONS (4)
  - ARTHRALGIA [None]
  - HEADACHE [None]
  - HYPERTENSION [None]
  - SINUSITIS [None]
